FAERS Safety Report 6828036-1 (Version None)
Quarter: 2010Q3

REPORT INFORMATION
  Report Type: 
  Country: None (occurrence: None)
  Receive Date: 20100709
  Receipt Date: 20100701
  Transmission Date: 20110219
  Serious: Yes (Hospitalization, Other)
  Sender: FDA-Public Use
  Company Number: B0623538C

PATIENT
  Sex: Female
  Weight: 83 kg

DRUGS (3)
  1. LAPATINIB [Suspect]
     Indication: BREAST CANCER
     Dosage: 1500MG PER DAY
     Route: 048
     Dates: start: 20091210, end: 20100520
  2. PACLITAXEL [Suspect]
     Indication: BREAST CANCER
     Dosage: 80MGM2 WEEKLY
     Route: 042
     Dates: start: 20091210, end: 20100305
  3. COTRIM [Concomitant]
     Indication: SKIN INFECTION
     Dosage: 960MG TWICE PER DAY
     Route: 048
     Dates: start: 20100603

REACTIONS (7)
  - EXTRAVASATION [None]
  - GRAFT LOSS [None]
  - IMPAIRED HEALING [None]
  - SKIN GRAFT [None]
  - SKIN INFECTION [None]
  - WOUND COMPLICATION [None]
  - WOUND INFECTION STAPHYLOCOCCAL [None]
